FAERS Safety Report 19273829 (Version 1)
Quarter: 2021Q2

REPORT INFORMATION
  Report Type: Spontaneous
  Country: US (occurrence: US)
  Receive Date: 20210519
  Receipt Date: 20210519
  Transmission Date: 20210717
  Serious: No
  Sender: FDA-Public Use
  Company Number: None

PATIENT
  Age: 64 Year
  Sex: Male
  Weight: 95.25 kg

DRUGS (1)
  1. LITHIUM (LITHIUM CARBONATE 300MG CAP) [Suspect]
     Active Substance: LITHIUM CARBONATE
     Route: 048
     Dates: start: 19990720, end: 20180323

REACTIONS (3)
  - Overdose [None]
  - Suicidal ideation [None]
  - Renal impairment [None]

NARRATIVE: CASE EVENT DATE: 20210210
